FAERS Safety Report 14500157 (Version 1)
Quarter: 2018Q1

REPORT INFORMATION
  Report Type: Not Available
  Country: US (occurrence: US)
  Receive Date: 20180207
  Receipt Date: 20180207
  Transmission Date: 20180509
  Serious: No
  Sender: FDA-Public Use
  Company Number: US-FOUNDATIONCONSUMERHC-2017-US-014855

PATIENT
  Age: 18 Year
  Sex: Female
  Weight: 74.84 kg

DRUGS (2)
  1. PLAN B ONE-STEP [Suspect]
     Active Substance: LEVONORGESTREL
     Dosage: 1 DOSE ON 12/11/17 + 1 DOSE IN 10/2017
     Route: 048
     Dates: start: 201710, end: 201710
  2. PLAN B ONE-STEP [Suspect]
     Active Substance: LEVONORGESTREL
     Dosage: 1 DOSE ON 12/11/17 + 1 DOSE IN 10/2017
     Route: 048
     Dates: start: 20171211, end: 20171211

REACTIONS (3)
  - Nausea [Unknown]
  - Dizziness [Unknown]
  - Vomiting [Recovered/Resolved]

NARRATIVE: CASE EVENT DATE: 201710
